FAERS Safety Report 13981529 (Version 1)
Quarter: 2017Q3

REPORT INFORMATION
  Report Type: Spontaneous
  Country: US (occurrence: US)
  Receive Date: 20170917
  Receipt Date: 20170917
  Transmission Date: 20171128
  Serious: Yes (Disabling)
  Sender: FDA-Public Use
  Company Number: None

PATIENT
  Age: 52 Year
  Sex: Male
  Weight: 110.25 kg

DRUGS (5)
  1. HUMIRA [Concomitant]
     Active Substance: ADALIMUMAB
  2. ASCEND 116 METHADONE 10 MG [Suspect]
     Active Substance: METHADONE HYDROCHLORIDE
     Indication: ANKYLOSING SPONDYLITIS
     Dosage: ?          QUANTITY:240 TABLET(S);?
     Route: 048
     Dates: start: 20170701, end: 20170901
  3. ASCEND 116 METHADONE 10 MG [Suspect]
     Active Substance: METHADONE HYDROCHLORIDE
     Indication: ARTHRALGIA
     Dosage: ?          QUANTITY:240 TABLET(S);?
     Route: 048
     Dates: start: 20170701, end: 20170901
  4. ASPIRIN. [Concomitant]
     Active Substance: ASPIRIN
  5. TYLENOL [Concomitant]
     Active Substance: ACETAMINOPHEN

REACTIONS (1)
  - Drug ineffective [None]

NARRATIVE: CASE EVENT DATE: 20170901
